FAERS Safety Report 8775503 (Version 21)
Quarter: 2014Q4

REPORT INFORMATION
  Report Type: Report from Study
  Country: CA (occurrence: CA)
  Receive Date: 20120911
  Receipt Date: 20141210
  Transmission Date: 20150529
  Serious: Yes (Hospitalization, Other)
  Sender: FDA-Public Use
  Company Number: CA-ROCHE-1111112

PATIENT
  Age: 57 Year
  Sex: Female
  Weight: 95.45 kg

DRUGS (6)
  1. TYLENOL [Concomitant]
     Active Substance: ACETAMINOPHEN
     Route: 065
  2. FOLIC ACID. [Concomitant]
     Active Substance: FOLIC ACID
  3. CIPRALEX [Concomitant]
     Active Substance: ESCITALOPRAM OXALATE
  4. ACTEMRA [Suspect]
     Active Substance: TOCILIZUMAB
     Indication: RHEUMATOID ARTHRITIS
     Dosage: 1ST RPAP DOSE
     Route: 042
     Dates: start: 20110518
  5. ACTEMRA [Suspect]
     Active Substance: TOCILIZUMAB
     Route: 042
  6. METHOTREXATE [Concomitant]
     Active Substance: METHOTREXATE

REACTIONS (21)
  - Diarrhoea [Not Recovered/Not Resolved]
  - Localised infection [Recovered/Resolved]
  - Vitamin B12 deficiency [Unknown]
  - Blood pressure increased [Unknown]
  - Bronchitis [Recovered/Resolved]
  - Oropharyngeal pain [Recovered/Resolved]
  - Diabetes mellitus [Unknown]
  - Ear infection [Recovering/Resolving]
  - Asthma [Recovering/Resolving]
  - Rhinitis [Recovering/Resolving]
  - Injection site rash [Not Recovered/Not Resolved]
  - Pain [Not Recovered/Not Resolved]
  - Rheumatoid arthritis [Unknown]
  - Blood cholesterol increased [Unknown]
  - Lower respiratory tract infection [Recovering/Resolving]
  - Drug administration error [Unknown]
  - Swelling [Not Recovered/Not Resolved]
  - Shoulder arthroplasty [Recovered/Resolved]
  - Pneumonia [Recovered/Resolved]
  - Injection site pruritus [Not Recovered/Not Resolved]
  - Weight increased [Unknown]

NARRATIVE: CASE EVENT DATE: 20120719
